FAERS Safety Report 5919657-9 (Version None)
Quarter: 2008Q4

REPORT INFORMATION
  Report Type: 
  Country: None (occurrence: None)
  Receive Date: 20081015
  Receipt Date: 20081007
  Transmission Date: 20090506
  Serious: Yes (Other)
  Sender: FDA-Public Use
  Company Number: JP-AVENTIS-200813148JP

PATIENT
  Age: 57 Year
  Sex: Female
  Weight: 46 kg

DRUGS (3)
  1. ARAVA [Suspect]
     Indication: RHEUMATOID ARTHRITIS
     Route: 048
     Dates: start: 20070326, end: 20070328
  2. ARAVA [Suspect]
     Route: 048
     Dates: start: 20070329, end: 20070423
  3. ARAVA [Suspect]
     Route: 048
     Dates: start: 20070424, end: 20070507

REACTIONS (4)
  - ALANINE AMINOTRANSFERASE INCREASED [None]
  - ASPARTATE AMINOTRANSFERASE INCREASED [None]
  - EOSINOPHIL COUNT INCREASED [None]
  - PYREXIA [None]
